FAERS Safety Report 5163886-1 (Version None)
Quarter: 2006Q4

REPORT INFORMATION
  Report Type: 
  Country: None (occurrence: None)
  Receive Date: 20061204
  Receipt Date: 20061101
  Transmission Date: 20070319
  Serious: Yes (Hospitalization, Other)
  Sender: FDA-Public Use
  Company Number: JP-BRISTOL-MYERS SQUIBB COMPANY-13570932

PATIENT
  Age: 64 Year
  Sex: Male

DRUGS (7)
  1. ABILIFY [Suspect]
     Indication: SCHIZOPHRENIA
     Route: 048
     Dates: start: 20060810, end: 20060821
  2. PEROSPIRONE [Suspect]
     Indication: SCHIZOPHRENIA
     Dates: start: 20060713, end: 20060822
  3. CHLORPROMAZINE HIBENZATE [Suspect]
     Indication: SCHIZOPHRENIA
     Route: 048
     Dates: start: 20060713, end: 20060822
  4. LEVOMEPROMAZINE MALEATE [Suspect]
     Indication: SCHIZOPHRENIA
     Route: 048
     Dates: start: 20060713, end: 20060821
  5. BIPERIDEN HYDROCHLORIDE TAB [Suspect]
     Indication: PARKINSONISM
     Route: 048
     Dates: start: 20060713
  6. FLUNITRAZEPAM [Suspect]
     Indication: INSOMNIA
     Route: 048
     Dates: start: 20060713, end: 20060821
  7. RISPERIDONE [Concomitant]
     Route: 048
     Dates: end: 20060901

REACTIONS (8)
  - AGITATION [None]
  - FATIGUE [None]
  - GAIT DISTURBANCE [None]
  - INSOMNIA [None]
  - PATIENT RESTRAINT [None]
  - PORIOMANIA [None]
  - RESTLESSNESS [None]
  - SELF INJURIOUS BEHAVIOUR [None]
